FAERS Safety Report 18272504 (Version 1)
Quarter: 2020Q3

REPORT INFORMATION
  Report Type: Spontaneous
  Country: US (occurrence: US)
  Receive Date: 20200915
  Receipt Date: 20200915
  Transmission Date: 20201103
  Serious: Yes (Hospitalization)
  Sender: FDA-Public Use
  Company Number: None

PATIENT
  Sex: Female

DRUGS (2)
  1. SOFOSBUVIR/VELPATASVIR 400?100MG ASEGUA THERAPEUTICS [Suspect]
     Active Substance: SOFOSBUVIR\VELPATASVIR
     Indication: CHRONIC HEPATITIS C
     Dosage: ?          OTHER DOSE:400?100MG;?
     Route: 048
     Dates: start: 20200507
  2. RIBAVIRIN 200MG AUROBINDO PHARMA [Suspect]
     Active Substance: RIBAVIRIN
     Indication: CHRONIC HEPATITIS C
     Dosage: ?          OTHER FREQUENCY:4 TABS DAILY;?
     Route: 048
     Dates: start: 20200507

REACTIONS (1)
  - Hepatic cirrhosis [None]
